FAERS Safety Report 9911670 (Version 1)
Quarter: 2014Q1

REPORT INFORMATION
  Report Type: Report from Study
  Country: AR (occurrence: AR)
  Receive Date: 20140219
  Receipt Date: 20140219
  Transmission Date: 20141002
  Serious: Yes (Death)
  Sender: FDA-Public Use
  Company Number: PHHY2014AR020417

PATIENT
  Age: 61 Year
  Sex: Male

DRUGS (2)
  1. DIOVAN [Suspect]
     Indication: HYPERTENSION
     Dosage: UNK UKN, UNK
     Route: 048
  2. EXFORGE D [Suspect]
     Indication: HYPERTENSION
     Dosage: UNK UKN, UNK
     Route: 048

REACTIONS (5)
  - Cardio-respiratory arrest [Fatal]
  - Gout [Unknown]
  - Mood altered [Unknown]
  - Somnolence [Unknown]
  - Fatigue [Unknown]
